FAERS Safety Report 12467290 (Version 1)
Quarter: 2016Q2

REPORT INFORMATION
  Report Type: Spontaneous
  Country: US (occurrence: None)
  Receive Date: 20160614
  Receipt Date: 20160614
  Transmission Date: 20160815
  Serious: Yes (Hospitalization)
  Sender: FDA-Public Use
  Company Number: None

PATIENT
  Age: 16 Year
  Sex: Male

DRUGS (5)
  1. THEREMS MVI [Concomitant]
  2. ZENPEP. [Concomitant]
  3. PULMOZYME [Suspect]
     Active Substance: DORNASE ALFA
     Indication: CYSTIC FIBROSIS
     Dosage: 2.5 MG QD NEB
     Dates: start: 20130821
  4. AQUADEKS [Concomitant]
     Active Substance: MINERALS\VITAMINS
  5. SCANDISHAKE [Concomitant]
     Active Substance: DIETARY SUPPLEMENT

REACTIONS (1)
  - Hospitalisation [None]
